FAERS Safety Report 9171384 (Version 1)
Quarter: 2013Q1

REPORT INFORMATION
  Report Type: Spontaneous
  Country: JP (occurrence: JP)
  Receive Date: 20130319
  Receipt Date: 20130319
  Transmission Date: 20140127
  Serious: Yes (Hospitalization)
  Sender: FDA-Public Use
  Company Number: JP-PFIZER INC-2013051650

PATIENT
  Age: 55 Year
  Sex: Male

DRUGS (2)
  1. CHAMPIX [Suspect]
     Indication: SMOKING CESSATION THERAPY
     Dosage: 0.5 MG, 1X/DAY
     Route: 048
     Dates: start: 20130128, end: 20130130
  2. CHAMPIX [Suspect]
     Dosage: 1.0 MG, 1X/DAY
     Route: 048
     Dates: start: 20130131, end: 20130203

REACTIONS (2)
  - Spinal column stenosis [Recovered/Resolved]
  - Drug ineffective [Unknown]
